FAERS Safety Report 9986800 (Version 1)
Quarter: 2014Q1

REPORT INFORMATION
  Report Type: Report from Study
  Country: US (occurrence: US)
  Receive Date: 20140307
  Receipt Date: 20140307
  Transmission Date: 20141002
  Serious: No
  Sender: FDA-Public Use
  Company Number: US-ABBVIE-13P-163-1082225-00

PATIENT
  Sex: Female
  Weight: 84.9 kg

DRUGS (16)
  1. HUMIRA [Suspect]
     Indication: PSORIATIC ARTHROPATHY
     Dates: start: 2009, end: 2009
  2. ALAVERT [Concomitant]
     Indication: HYPERSENSITIVITY
  3. BIOTIN [Concomitant]
     Indication: SUPPLEMENTATION THERAPY
  4. DICYCLOMINE [Concomitant]
     Indication: IRRITABLE BOWEL SYNDROME
  5. FLEXERIL [Concomitant]
     Indication: MUSCLE SPASMS
  6. FOLIC ACID [Concomitant]
     Indication: SUPPLEMENTATION THERAPY
  7. LEVOTHYROXINE [Concomitant]
     Indication: THYROID DISORDER
  8. LIDODERM PATCH [Concomitant]
     Indication: PAIN
  9. MAXALT [Concomitant]
     Indication: MIGRAINE
  10. MULTIVITAMIN [Concomitant]
     Indication: SUPPLEMENTATION THERAPY
  11. SERTRALINE [Concomitant]
     Indication: DEPRESSION
  12. TRAMADOL [Concomitant]
     Indication: PAIN
  13. VITAMIN D [Concomitant]
     Indication: SUPPLEMENTATION THERAPY
  14. XANAX [Concomitant]
     Indication: ANXIETY
  15. LEUCOVORAN [Concomitant]
     Indication: PSORIATIC ARTHROPATHY
  16. METHOTREXATE [Concomitant]
     Indication: PSORIATIC ARTHROPATHY

REACTIONS (1)
  - Disturbance in attention [Recovered/Resolved]
